FAERS Safety Report 15786824 (Version 1)
Quarter: 2019Q1

REPORT INFORMATION
  Report Type: Spontaneous
  Country: DK (occurrence: DK)
  Receive Date: 20190103
  Receipt Date: 20190103
  Transmission Date: 20190417
  Serious: Yes (Other)
  Sender: FDA-Public Use
  Company Number: DK-BAUSCH-BL-2018-036141

PATIENT
  Age: 45 Year
  Sex: Female

DRUGS (2)
  1. PODOPHYLLOTOXIN [Suspect]
     Active Substance: PODOFILOX
     Indication: ANOGENITAL WARTS
     Route: 065
  2. IMIGRANE [Concomitant]
     Active Substance: SUMATRIPTAN SUCCINATE
     Indication: MIGRAINE
     Route: 048

REACTIONS (1)
  - Treatment failure [Unknown]
